FAERS Safety Report 13402955 (Version 1)
Quarter: 2017Q2

REPORT INFORMATION
  Report Type: Spontaneous
  Country: US (occurrence: US)
  Receive Date: 20170404
  Receipt Date: 20170404
  Transmission Date: 20170830
  Serious: No
  Sender: FDA-Public Use
  Company Number: US-ROCHE-1831100

PATIENT
  Age: 64 Year
  Sex: Male

DRUGS (10)
  1. THORAZINE [Concomitant]
     Active Substance: CHLORPROMAZINE
  2. AVASTIN [Suspect]
     Active Substance: BEVACIZUMAB
     Indication: COLON CANCER
     Route: 065
  3. ZOFRAN [Concomitant]
     Active Substance: ONDANSETRON HYDROCHLORIDE
  4. CYANOCOBALAMIN. [Concomitant]
     Active Substance: CYANOCOBALAMIN
  5. GINGER. [Concomitant]
     Active Substance: GINGER
  6. ZOCOR [Concomitant]
     Active Substance: SIMVASTATIN
  7. MILK THISTLE [Concomitant]
     Active Substance: MILK THISTLE
  8. OMEGA-3 FISH OIL FAT EMULSION INJECTION [Concomitant]
  9. TURMERIC [Concomitant]
     Active Substance: HERBALS\TURMERIC
  10. PROAIR HFA [Concomitant]
     Active Substance: ALBUTEROL SULFATE

REACTIONS (3)
  - Vomiting [Unknown]
  - Fatigue [Unknown]
  - Nausea [Unknown]
